FAERS Safety Report 6769326-0 (Version None)
Quarter: 2010Q2

REPORT INFORMATION
  Report Type: 
  Country: None (occurrence: None)
  Receive Date: 20100520
  Receipt Date: 20090331
  Transmission Date: 20101027
  Serious: Yes (Other)
  Sender: FDA-Public Use
  Company Number: 2008001897

PATIENT
  Age: 67 Year
  Sex: Female
  Weight: 86 kg

DRUGS (21)
  1. PROVERA [Suspect]
     Indication: HORMONE REPLACEMENT THERAPY
     Dosage: ORAL
     Route: 048
     Dates: start: 19930101, end: 20020211
  2. PROVERA [Suspect]
     Indication: MENOPAUSE
     Dosage: ORAL
     Route: 048
     Dates: start: 19930101, end: 20020211
  3. PREMARIN [Suspect]
     Indication: HORMONE REPLACEMENT THERAPY
     Dosage: ORAL
     Route: 048
     Dates: start: 19830101, end: 19921105
  4. PREMARIN [Suspect]
     Indication: MENOPAUSE
     Dosage: ORAL
     Route: 048
     Dates: start: 19830101, end: 19921105
  5. PREMPRO [Suspect]
     Indication: HORMONE REPLACEMENT THERAPY
     Dosage: ORAL
     Route: 048
     Dates: start: 19880101, end: 20020101
  6. PREMPRO [Suspect]
     Indication: MENOPAUSE
     Dosage: ORAL
     Route: 048
     Dates: start: 19880101, end: 20020101
  7. ESTRACE [Suspect]
     Indication: HORMONE REPLACEMENT THERAPY
     Dosage: 0.1 MG, 1X/DAY
     Dates: start: 19921105, end: 19930318
  8. ESTRACE [Suspect]
     Indication: MENOPAUSE
     Dosage: 0.1 MG, 1X/DAY
     Dates: start: 19921105, end: 19930318
  9. CLIMARA [Suspect]
     Indication: HORMONE REPLACEMENT THERAPY
     Dosage: 0.1 MG
     Dates: start: 19980801, end: 19981101
  10. CLIMARA [Suspect]
     Indication: MENOPAUSE
     Dosage: 0.1 MG
     Dates: start: 19980801, end: 19981101
  11. ESTRADERM [Suspect]
     Indication: HORMONE REPLACEMENT THERAPY
     Dosage: TRANSDERMAL
     Route: 062
     Dates: start: 19930318, end: 20011217
  12. ESTRADERM [Suspect]
     Indication: MENOPAUSE
     Dosage: TRANSDERMAL
     Route: 062
     Dates: start: 19930318, end: 20011217
  13. VIVELLE [Suspect]
     Indication: HORMONE REPLACEMENT THERAPY
     Dosage: TRANSDERMAL
     Route: 062
     Dates: start: 20011217, end: 20020211
  14. VIVELLE [Suspect]
     Indication: MENOPAUSE
     Dosage: TRANSDERMAL
     Route: 062
     Dates: start: 20011217, end: 20020211
  15. LEVOTHYROXINE SODIUM [Concomitant]
  16. WELLBUTRIN [Concomitant]
  17. SYNTHROID [Concomitant]
  18. XALATAN [Concomitant]
  19. LIPITOR [Concomitant]
  20. AZOPT [Concomitant]
  21. METFORMIN HCL [Concomitant]

REACTIONS (1)
  - BREAST CANCER FEMALE [None]
